FAERS Safety Report 14367702 (Version 1)
Quarter: 2018Q1

REPORT INFORMATION
  Report Type: Spontaneous
  Country: US (occurrence: US)
  Receive Date: 20180109
  Receipt Date: 20180109
  Transmission Date: 20180509
  Serious: No
  Sender: FDA-Public Use
  Company Number: US-PERRIGO-17US001734

PATIENT
  Age: 55 Year
  Sex: Female
  Weight: 72.56 kg

DRUGS (1)
  1. STIE-CORT [Suspect]
     Active Substance: HYDROCORTISONE
     Indication: PRURITUS
     Dosage: SMALL AMOUNT, PRN
     Route: 061
     Dates: start: 201606

REACTIONS (1)
  - Immunology test abnormal [Unknown]

NARRATIVE: CASE EVENT DATE: 20170215
